FAERS Safety Report 6367795-1 (Version None)
Quarter: 2009Q3

REPORT INFORMATION
  Report Type: 
  Country: None (occurrence: None)
  Receive Date: 20090921
  Receipt Date: 20090910
  Transmission Date: 20100115
  Serious: Yes (Death, Other)
  Sender: FDA-Public Use
  Company Number: US-BAXTER-2009BH013642

PATIENT
  Age: 69 Year
  Sex: Female

DRUGS (6)
  1. HEPARIN SODIUM INJECTION [Suspect]
     Indication: DRUG USE FOR UNKNOWN INDICATION
     Route: 042
     Dates: start: 20070515, end: 20070515
  2. HEPARIN SODIUM INJECTION [Suspect]
     Route: 042
     Dates: start: 20070518, end: 20070518
  3. HEPARIN SODIUM INJECTION [Suspect]
     Route: 042
     Dates: start: 20070531, end: 20070531
  4. ASPIRIN [Concomitant]
     Indication: DRUG USE FOR UNKNOWN INDICATION
     Route: 065
  5. COLACE [Concomitant]
     Indication: DRUG USE FOR UNKNOWN INDICATION
     Route: 065
  6. MULTI-VITAMINS [Concomitant]
     Indication: DRUG USE FOR UNKNOWN INDICATION
     Route: 065

REACTIONS (16)
  - ARTERIOSCLEROSIS [None]
  - BRONCHOPNEUMONIA [None]
  - DIFFUSE ALVEOLAR DAMAGE [None]
  - DISSEMINATED INTRAVASCULAR COAGULATION [None]
  - DIVERTICULUM [None]
  - DIZZINESS [None]
  - DYSPNOEA [None]
  - GASTRITIS HAEMORRHAGIC [None]
  - INTESTINAL PERFORATION [None]
  - LETHARGY [None]
  - NAUSEA [None]
  - RENAL FAILURE [None]
  - SPLENIC INFARCTION [None]
  - THROMBOCYTOPENIA [None]
  - UNRESPONSIVE TO STIMULI [None]
  - UTERINE POLYP [None]
